FAERS Safety Report 8619546-5 (Version None)
Quarter: 2012Q3

REPORT INFORMATION
  Report Type: 
  Country: None (occurrence: None)
  Receive Date: 20120824
  Receipt Date: 20120406
  Transmission Date: 20120928
  Serious: No
  Sender: FDA-Public Use
  Company Number: US-ASTRAZENECA-2012SE22992

PATIENT
  Age: 86 Year
  Sex: Female
  Weight: 51.3 kg

DRUGS (4)
  1. ACID REFLUX MEDICATIONS [Concomitant]
  2. SYMBICORT [Suspect]
     Indication: CHRONIC OBSTRUCTIVE PULMONARY DISEASE
     Dosage: 160/4.5 MCG, TWO PUFFS, TWO TIMES A DAY
     Route: 055
  3. HYPERTENSION MEDICATION [Concomitant]
  4. ASPIRIN [Concomitant]
     Dosage: ONCE DAILY

REACTIONS (6)
  - FATIGUE [None]
  - NAUSEA [None]
  - WHEEZING [None]
  - COUGH [None]
  - PAIN [None]
  - CHILLS [None]
